FAERS Safety Report 23924445 (Version 1)
Quarter: 2024Q2

REPORT INFORMATION
  Report Type: Spontaneous
  Country: PH (occurrence: PH)
  Receive Date: 20240531
  Receipt Date: 20240531
  Transmission Date: 20240716
  Serious: Yes (Hospitalization)
  Sender: FDA-Public Use
  Company Number: PH-PFIZER INC-202400179598

PATIENT

DRUGS (1)
  1. CLINDAMYCIN [Suspect]
     Active Substance: CLINDAMYCIN
     Indication: Cellulitis
     Dosage: 300 MG, 2X/DAY

REACTIONS (6)
  - Muscular weakness [Unknown]
  - Fall [Unknown]
  - Cerebrovascular accident [Unknown]
  - Hypertension [Unknown]
  - Depressed mood [Unknown]
  - Dysarthria [Unknown]
